FAERS Safety Report 8131557-5 (Version None)
Quarter: 2012Q1

REPORT INFORMATION
  Report Type: 
  Country: None (occurrence: None)
  Receive Date: 20120213
  Receipt Date: 20120203
  Transmission Date: 20120608
  Serious: Yes (Hospitalization, Other)
  Sender: FDA-Public Use
  Company Number: US-JNJFOC-20101208398

PATIENT
  Sex: Female

DRUGS (6)
  1. LEVAQUIN [Suspect]
     Indication: PROPHYLAXIS
     Route: 048
  2. VICODIN [Suspect]
     Indication: PRODUCT USED FOR UNKNOWN INDICATION
     Route: 048
  3. METHYLPREDNISOLONE [Suspect]
     Indication: PAIN
     Route: 065
  4. LEVAQUIN [Suspect]
     Indication: WOUND INFECTION
     Route: 048
  5. AMITRIPTYLINE HCL [Suspect]
     Indication: PRODUCT USED FOR UNKNOWN INDICATION
     Route: 048
  6. LYRICA [Suspect]
     Indication: PRODUCT USED FOR UNKNOWN INDICATION
     Route: 048

REACTIONS (3)
  - TENDONITIS [None]
  - ARTHRALGIA [None]
  - COMPLEX REGIONAL PAIN SYNDROME [None]
